FAERS Safety Report 16841202 (Version 3)
Quarter: 2019Q4

REPORT INFORMATION
  Report Type: Spontaneous
  Country: JP (occurrence: JP)
  Receive Date: 20190923
  Receipt Date: 20191025
  Transmission Date: 20200122
  Serious: Yes (Other)
  Sender: FDA-Public Use
  Company Number: JP-OTSUKA-2019_032805

PATIENT
  Age: 94 Year
  Sex: Female

DRUGS (4)
  1. SAMSCA [Suspect]
     Active Substance: TOLVAPTAN
     Dosage: 0.5 TABLET, QD
     Route: 048
     Dates: start: 20190917
  2. SAMSCA [Suspect]
     Active Substance: TOLVAPTAN
     Indication: CARDIAC FAILURE
     Dosage: 7.5 MG, QD
     Route: 048
     Dates: start: 20190830, end: 20190916
  3. URIADEC [Suspect]
     Active Substance: TOPIROXOSTAT
     Indication: PRODUCT USED FOR UNKNOWN INDICATION
     Dosage: 40 MG, QD
     Route: 048
     Dates: start: 20190903, end: 20190908
  4. URIADEC [Suspect]
     Active Substance: TOPIROXOSTAT
     Dosage: 0.5 TABLET, QD
     Route: 048
     Dates: start: 20190909, end: 20190913

REACTIONS (1)
  - Liver disorder [Recovered/Resolved]
